FAERS Safety Report 15465947 (Version 1)
Quarter: 2018Q4

REPORT INFORMATION
  Report Type: Spontaneous
  Country: SE (occurrence: SE)
  Receive Date: 20181004
  Receipt Date: 20181004
  Transmission Date: 20190204
  Serious: Yes (Other)
  Sender: FDA-Public Use
  Company Number: SE-PFIZER INC-2018396509

PATIENT
  Age: 68 Year
  Sex: Female
  Weight: 56 kg

DRUGS (6)
  1. CRESTOR [Concomitant]
     Active Substance: ROSUVASTATIN CALCIUM
     Dates: start: 2006
  2. OXASCAND [Concomitant]
     Active Substance: OXAZEPAM
     Dates: start: 2015, end: 20180427
  3. IMOVANE [Concomitant]
     Active Substance: ZOPICLONE
     Dates: start: 2012
  4. SERTRALINE HCL [Suspect]
     Active Substance: SERTRALINE HYDROCHLORIDE
     Indication: DEPRESSION
     Dosage: 50 MG, DAILY
     Dates: start: 20171025, end: 20180425
  5. TROMBYL [Concomitant]
     Active Substance: ASPIRIN
     Dates: start: 2006
  6. EMCONCOR [Concomitant]
     Active Substance: BISOPROLOL FUMARATE
     Dates: start: 2006

REACTIONS (1)
  - Colitis microscopic [Recovered/Resolved with Sequelae]

NARRATIVE: CASE EVENT DATE: 20171223
